FAERS Safety Report 25541106 (Version 1)
Quarter: 2025Q3

REPORT INFORMATION
  Report Type: Report from Study
  Country: US (occurrence: US)
  Receive Date: 20250710
  Receipt Date: 20250710
  Transmission Date: 20251020
  Serious: Yes (Other)
  Sender: ABBVIE
  Company Number: US-ABBVIE-6361770

PATIENT
  Age: 78 Year
  Sex: Male

DRUGS (1)
  1. CREON [Suspect]
     Active Substance: PANCRELIPASE AMYLASE\PANCRELIPASE LIPASE\PANCRELIPASE PROTEASE
     Indication: Product used for unknown indication
     Route: 048
     Dates: start: 20210901

REACTIONS (9)
  - Pancreatic carcinoma [Unknown]
  - Diarrhoea [Unknown]
  - Asthenia [Unknown]
  - Deafness [Unknown]
  - Abdominal pain upper [Unknown]
  - Lacrimation increased [Unknown]
  - Poor quality sleep [Unknown]
  - Malaise [Unknown]
  - Blister [Unknown]

NARRATIVE: CASE EVENT DATE: 20210101
